FAERS Safety Report 14261869 (Version 2)
Quarter: 2017Q4

REPORT INFORMATION
  Report Type: Spontaneous
  Country: US (occurrence: US)
  Receive Date: 20171208
  Receipt Date: 20171222
  Transmission Date: 20180321
  Serious: Yes (Death, Hospitalization)
  Sender: FDA-Public Use
  Company Number: US-TAIHO ONCOLOGY INC-EU-2017-01479

PATIENT
  Age: 63 Year
  Sex: Male

DRUGS (2)
  1. LONSURF [Suspect]
     Active Substance: TIPIRACIL HYDROCHLORIDE\TRIFLURIDINE
     Indication: RECTOSIGMOID CANCER
     Dosage: 2ND CYCLE STARTED ON: 06/NOV/2017
     Route: 048
     Dates: start: 20171006, end: 20171109
  2. LONSURF [Suspect]
     Active Substance: TIPIRACIL HYDROCHLORIDE\TRIFLURIDINE
     Indication: RECTAL CANCER METASTATIC

REACTIONS (15)
  - Hypokalaemia [Unknown]
  - Delirium [Unknown]
  - Fatigue [Unknown]
  - Drug intolerance [Unknown]
  - Diarrhoea [Not Recovered/Not Resolved]
  - Decreased appetite [Unknown]
  - Blood bilirubin increased [Unknown]
  - Asthenia [Unknown]
  - Anaemia [Unknown]
  - Abdominal distension [Unknown]
  - Ascites [Unknown]
  - General physical health deterioration [Not Recovered/Not Resolved]
  - Disease progression [Fatal]
  - Jaundice [Unknown]
  - Abdominal pain [Unknown]

NARRATIVE: CASE EVENT DATE: 2017
